FAERS Safety Report 25805766 (Version 1)
Quarter: 2025Q3

REPORT INFORMATION
  Report Type: Spontaneous
  Country: US (occurrence: US)
  Receive Date: 20250916
  Receipt Date: 20250916
  Transmission Date: 20251021
  Serious: No
  Sender: ELI LILLY AND COMPANY
  Company Number: US-ELI_LILLY_AND_COMPANY-US202509013204

PATIENT
  Age: 65 Year
  Sex: Male

DRUGS (9)
  1. MOUNJARO [Interacting]
     Active Substance: TIRZEPATIDE
     Indication: Type 2 diabetes mellitus
     Route: 065
     Dates: start: 20250721
  2. MOUNJARO [Interacting]
     Active Substance: TIRZEPATIDE
     Indication: Type 2 diabetes mellitus
     Route: 065
     Dates: start: 20250721
  3. MOUNJARO [Interacting]
     Active Substance: TIRZEPATIDE
     Indication: Type 2 diabetes mellitus
     Route: 065
     Dates: start: 20250721
  4. MOUNJARO [Interacting]
     Active Substance: TIRZEPATIDE
     Indication: Type 2 diabetes mellitus
     Route: 065
     Dates: start: 20250721
  5. MOUNJARO [Interacting]
     Active Substance: TIRZEPATIDE
     Indication: Weight decreased
     Route: 065
  6. MOUNJARO [Interacting]
     Active Substance: TIRZEPATIDE
     Indication: Weight decreased
     Route: 065
  7. MOUNJARO [Interacting]
     Active Substance: TIRZEPATIDE
     Indication: Weight decreased
     Route: 065
  8. MOUNJARO [Interacting]
     Active Substance: TIRZEPATIDE
     Indication: Weight decreased
     Route: 065
  9. LEVOCETIRIZINE DIHYDROCHLORIDE [Interacting]
     Active Substance: LEVOCETIRIZINE DIHYDROCHLORIDE
     Indication: Product used for unknown indication
     Route: 065

REACTIONS (2)
  - Erectile dysfunction [Unknown]
  - Drug interaction [Unknown]
